FAERS Safety Report 9709437 (Version 2)
Quarter: 2015Q1

REPORT INFORMATION
  Report Type: Report from Study
  Country: US (occurrence: US)
  Receive Date: 20131126
  Receipt Date: 20150316
  Transmission Date: 20150721
  Serious: Yes (Death)
  Sender: FDA-Public Use
  Company Number: US-ROCHE-1304322

PATIENT
  Sex: Female
  Weight: 45 kg

DRUGS (6)
  1. CYTOXAN [Suspect]
     Active Substance: CYCLOPHOSPHAMIDE
     Route: 065
  2. DECADRON [Concomitant]
     Active Substance: DEXAMETHASONE
     Dosage: RECEIVED ON 22/DEC/2011
     Route: 065
  3. ZOFRAN [Concomitant]
     Active Substance: ONDANSETRON HYDROCHLORIDE
     Dosage: RECEIVED ON 22/DEC/2011
     Route: 065
  4. AVASTIN [Suspect]
     Active Substance: BEVACIZUMAB
     Indication: OVARIAN CANCER
     Dosage: DOSE RECEIVED ON 22/DEC/2011
     Route: 042
  5. AVASTIN [Suspect]
     Active Substance: BEVACIZUMAB
     Indication: MALIGNANT PERITONEAL NEOPLASM
     Dosage: DOSE RECEIVED ON 05/JAN/2012
     Route: 042
  6. CYTOXAN [Suspect]
     Active Substance: CYCLOPHOSPHAMIDE
     Indication: PRODUCT USED FOR UNKNOWN INDICATION
     Dosage: RECEIVED ON 22/DEC/2011
     Route: 065

REACTIONS (19)
  - Vomiting [Unknown]
  - Oedema peripheral [Recovering/Resolving]
  - Death [Fatal]
  - Cough [Unknown]
  - Nocturia [Unknown]
  - Asthenia [Unknown]
  - Chromaturia [Unknown]
  - Fatigue [Not Recovered/Not Resolved]
  - Increased tendency to bruise [Unknown]
  - Anxiety [Unknown]
  - Breath sounds abnormal [Unknown]
  - Abdominal pain [Recovering/Resolving]
  - Back pain [Unknown]
  - Nausea [Unknown]
  - Dyspepsia [Unknown]
  - Diarrhoea [Recovered/Resolved]
  - Pollakiuria [Unknown]
  - Dizziness [Unknown]
  - Ecchymosis [Unknown]
